FAERS Safety Report 9368758 (Version 1)
Quarter: 2013Q2

REPORT INFORMATION
  Report Type: Spontaneous
  Country: BE (occurrence: BE)
  Receive Date: 20130626
  Receipt Date: 20130626
  Transmission Date: 20140414
  Serious: Yes (Other)
  Sender: FDA-Public Use
  Company Number: PHHY2013BE064910

PATIENT
  Age: 77 Year
  Sex: Female

DRUGS (2)
  1. ANASTROZOLE SANDOZ [Suspect]
     Indication: BREAST NEOPLASM
     Dosage: 1 MG, QD
     Dates: start: 201208, end: 20130411
  2. BONVIVA [Concomitant]
     Dates: start: 20120508

REACTIONS (3)
  - Skin plaque [Unknown]
  - Stasis dermatitis [Unknown]
  - Oedema peripheral [Unknown]
